FAERS Safety Report 12166925 (Version 1)
Quarter: 2016Q1

REPORT INFORMATION
  Report Type: Spontaneous
  Country: FR (occurrence: FR)
  Receive Date: 20160310
  Receipt Date: 20160310
  Transmission Date: 20160526
  Serious: Yes (Other)
  Sender: FDA-Public Use
  Company Number: FR-ASTRAZENECA-2016SE23528

PATIENT
  Age: 19 Year
  Sex: Female

DRUGS (1)
  1. ZOMIGORO [Suspect]
     Active Substance: ZOLMITRIPTAN
     Indication: MIGRAINE WITHOUT AURA
     Route: 048
     Dates: start: 201006, end: 20131113

REACTIONS (2)
  - Drug abuse [Unknown]
  - Headache [Recovered/Resolved]
